FAERS Safety Report 21687610 (Version 7)
Quarter: 2024Q3

REPORT INFORMATION
  Report Type: Spontaneous
  Country: RU (occurrence: RU)
  Receive Date: 20221206
  Receipt Date: 20240813
  Transmission Date: 20241016
  Serious: Yes (Life-Threatening, Other)
  Sender: JOHNSON AND JOHNSON
  Company Number: RU-JNJFOC-20221205440

PATIENT
  Sex: Female
  Weight: 49 kg

DRUGS (36)
  1. SIRTURO [Suspect]
     Active Substance: BEDAQUILINE FUMARATE
     Indication: Tuberculosis
     Dosage: DOSE: 0.2
     Route: 048
     Dates: start: 20221110, end: 20221125
  2. SIRTURO [Suspect]
     Active Substance: BEDAQUILINE FUMARATE
     Route: 048
     Dates: start: 20221214, end: 20230220
  3. SIRTURO [Suspect]
     Active Substance: BEDAQUILINE FUMARATE
     Route: 048
     Dates: end: 20230414
  4. SIRTURO [Suspect]
     Active Substance: BEDAQUILINE FUMARATE
     Route: 048
     Dates: start: 20230424, end: 20230525
  5. SIRTURO [Suspect]
     Active Substance: BEDAQUILINE FUMARATE
     Route: 048
     Dates: start: 20230527, end: 20231027
  6. LEVOFLOXACIN [Suspect]
     Active Substance: LEVOFLOXACIN
     Indication: Tuberculosis
     Route: 065
     Dates: start: 20221110, end: 20221125
  7. LEVOFLOXACIN [Suspect]
     Active Substance: LEVOFLOXACIN
     Route: 065
     Dates: start: 20221214, end: 20230220
  8. LEVOFLOXACIN [Suspect]
     Active Substance: LEVOFLOXACIN
     Route: 065
     Dates: end: 20230414
  9. LEVOFLOXACIN [Suspect]
     Active Substance: LEVOFLOXACIN
     Route: 065
     Dates: start: 20230424, end: 20230525
  10. LEVOFLOXACIN [Suspect]
     Active Substance: LEVOFLOXACIN
     Route: 065
     Dates: start: 20230527, end: 20231027
  11. LINEZOLID [Suspect]
     Active Substance: LINEZOLID
     Indication: Tuberculosis
     Route: 065
     Dates: start: 20221110, end: 20221125
  12. LINEZOLID [Suspect]
     Active Substance: LINEZOLID
     Route: 065
     Dates: start: 20221214, end: 20230220
  13. LINEZOLID [Suspect]
     Active Substance: LINEZOLID
     Route: 065
     Dates: end: 20230414
  14. LINEZOLID [Suspect]
     Active Substance: LINEZOLID
     Route: 065
     Dates: start: 20230424, end: 20230525
  15. LINEZOLID [Suspect]
     Active Substance: LINEZOLID
     Route: 065
     Dates: start: 20230527, end: 20231027
  16. CLOFAZIMINE [Suspect]
     Active Substance: CLOFAZIMINE
     Indication: Tuberculosis
     Route: 065
     Dates: start: 20221110, end: 20221125
  17. CLOFAZIMINE [Suspect]
     Active Substance: CLOFAZIMINE
     Route: 065
     Dates: start: 20221214, end: 20230220
  18. CLOFAZIMINE [Suspect]
     Active Substance: CLOFAZIMINE
     Route: 065
     Dates: end: 20230414
  19. CLOFAZIMINE [Suspect]
     Active Substance: CLOFAZIMINE
     Route: 065
     Dates: start: 20230424, end: 20230525
  20. CLOFAZIMINE [Suspect]
     Active Substance: CLOFAZIMINE
     Route: 065
     Dates: start: 20230527, end: 20231027
  21. ETHAMSYLATE [Concomitant]
     Active Substance: ETHAMSYLATE
     Indication: Haematochezia
     Route: 065
     Dates: start: 20221123
  22. AMINOCAPROIC ACID [Concomitant]
     Active Substance: AMINOCAPROIC ACID
     Indication: Haematochezia
     Route: 065
     Dates: start: 20221123
  23. SPIRONOLACTONE [Concomitant]
     Active Substance: SPIRONOLACTONE
     Route: 065
     Dates: start: 20221110
  24. MAGNESIUM ASPARTATE\POTASSIUM ASPARTATE [Concomitant]
     Active Substance: MAGNESIUM ASPARTATE\POTASSIUM ASPARTATE
     Dosage: DOSE: 177 MG PLUS 177 MG
     Route: 065
     Dates: start: 20221110
  25. BENFOTIAMINE [Concomitant]
     Active Substance: BENFOTIAMINE
     Indication: Polyneuropathy
     Dosage: EVERY OTHER DAY
     Route: 065
     Dates: start: 20221110
  26. ALBUMIN HUMAN [Concomitant]
     Active Substance: ALBUMIN HUMAN
     Route: 042
  27. OMEPRAZOLE [Concomitant]
     Active Substance: OMEPRAZOLE
     Route: 065
     Dates: start: 20221110, end: 20221110
  28. MAGNESIUM ASPARTATE\POTASSIUM ASPARTATE [Concomitant]
     Active Substance: MAGNESIUM ASPARTATE\POTASSIUM ASPARTATE
     Route: 065
  29. AMITRIPTYLINE [Concomitant]
     Active Substance: AMITRIPTYLINE
     Indication: Product used for unknown indication
     Route: 065
     Dates: start: 20221110, end: 20230718
  30. BISOPROLOL [Concomitant]
     Active Substance: BISOPROLOL\BISOPROLOL FUMARATE
     Indication: Product used for unknown indication
     Route: 065
     Dates: start: 20221110, end: 20230831
  31. BISOPROLOL [Concomitant]
     Active Substance: BISOPROLOL\BISOPROLOL FUMARATE
     Indication: Essential hypertension
     Route: 048
  32. ESSENTIAL PHOSPHOLIPIDS [Concomitant]
     Indication: Product used for unknown indication
     Route: 065
     Dates: start: 20221110, end: 20230111
  33. TORSEMIDE [Concomitant]
     Active Substance: TORSEMIDE
     Indication: Essential hypertension
     Route: 048
     Dates: start: 20230306
  34. ENALAPRIL [Concomitant]
     Active Substance: ENALAPRIL
     Indication: Essential hypertension
     Route: 048
     Dates: start: 20230306
  35. VALPROIC ACID [Concomitant]
     Active Substance: VALPROIC ACID
     Indication: Encephalopathy
     Route: 048
  36. VALPROIC ACID [Concomitant]
     Active Substance: VALPROIC ACID
     Indication: Seizure prophylaxis

REACTIONS (6)
  - Anaemia [Recovering/Resolving]
  - Nephropathy toxic [Recovered/Resolved with Sequelae]
  - Transaminases increased [Recovered/Resolved with Sequelae]
  - Diarrhoea [Unknown]
  - Herpes virus infection [Unknown]
  - Post herpetic neuralgia [Unknown]

NARRATIVE: CASE EVENT DATE: 20221125
